FAERS Safety Report 7398760-3 (Version None)
Quarter: 2011Q2

REPORT INFORMATION
  Report Type: 
  Country: None (occurrence: None)
  Receive Date: 20110401
  Receipt Date: 20110401
  Transmission Date: 20111010
  Serious: Yes (Hospitalization)
  Sender: FDA-Public Use
  Company Number: None

PATIENT
  Age: 78 Year
  Sex: Male
  Weight: 56 kg

DRUGS (1)
  1. COLCHICINE [Suspect]
     Indication: GOUT
     Dosage: 0.6 MG QID PO
     Route: 048
     Dates: start: 20110222, end: 20110301

REACTIONS (6)
  - VENTRICULAR TACHYCARDIA [None]
  - FALL [None]
  - DEHYDRATION [None]
  - DIARRHOEA [None]
  - SYNCOPE [None]
  - PALPITATIONS [None]
